FAERS Safety Report 7474395-9 (Version None)
Quarter: 2011Q2

REPORT INFORMATION
  Report Type: 
  Country: None (occurrence: None)
  Receive Date: 20110512
  Receipt Date: 20110216
  Transmission Date: 20111010
  Serious: Yes (Disabling, Other)
  Sender: FDA-Public Use
  Company Number: US-BAYER-2011-015818

PATIENT
  Age: 38 Year
  Sex: Male

DRUGS (2)
  1. AVELOX [Suspect]
     Dosage: 400 MG, QD
     Route: 048
     Dates: start: 20110213, end: 20110215
  2. GUAIFENESIN [Concomitant]
     Dosage: 200 MG, EVERY 2-6 HOURS

REACTIONS (1)
  - RASH [None]
